FAERS Safety Report 5364776-1 (Version None)
Quarter: 2007Q2

REPORT INFORMATION
  Report Type: 
  Country: None (occurrence: None)
  Receive Date: 20070530
  Receipt Date: 20070123
  Transmission Date: 20071010
  Serious: No
  Sender: FDA-Public Use
  Company Number: 2007PV028899

PATIENT
  Age: 26 Year
  Sex: Female

DRUGS (6)
  1. BYETTA [Suspect]
     Indication: DIABETES MELLITUS NON-INSULIN-DEPENDENT
     Dosage: SC, SC' 10 MCG, BID; SC
     Route: 058
     Dates: start: 20050801, end: 20060101
  2. BYETTA [Suspect]
     Indication: DIABETES MELLITUS NON-INSULIN-DEPENDENT
     Dosage: SC, SC' 10 MCG, BID; SC
     Route: 058
     Dates: start: 20061001, end: 20070101
  3. VYTORIN [Concomitant]
  4. DIOVAN [Concomitant]
  5. METFROMIN [Concomitant]
  6. PAXIL [Concomitant]

REACTIONS (3)
  - DRUG EXPOSURE DURING PREGNANCY [None]
  - INJECTION SITE PAIN [None]
  - PREMATURE BABY [None]
